FAERS Safety Report 4311833-4 (Version None)
Quarter: 2004Q1

REPORT INFORMATION
  Report Type: 
  Country: None (occurrence: None)
  Receive Date: 20040304
  Receipt Date: 20040301
  Transmission Date: 20041129
  Serious: Yes (Hospitalization, Disabling)
  Sender: FDA-Public Use
  Company Number: WAES 0403USA00144

PATIENT
  Age: 59 Year
  Sex: Female

DRUGS (3)
  1. NORVASC [Concomitant]
  2. HYDROCORTONE [Suspect]
     Indication: ADRENAL INSUFFICIENCY
     Route: 048
     Dates: start: 19840101
  3. ACCUPRIL [Concomitant]

REACTIONS (4)
  - ARTHRALGIA [None]
  - FALL [None]
  - LIMB INJURY [None]
  - TENDON DISORDER [None]
